FAERS Safety Report 11247502 (Version 2)
Quarter: 2015Q2

REPORT INFORMATION
  Report Type: Spontaneous
  Country: US (occurrence: None)
  Receive Date: 20150617
  Receipt Date: 20150617
  Transmission Date: 20150821
  Serious: No
  Sender: FDA-Public Use
  Company Number: 2014TASUS000455

PATIENT
  Age: 48 Year
  Sex: Male
  Weight: 82.5 kg

DRUGS (10)
  1. COLESTIPOL [Concomitant]
     Active Substance: COLESTIPOL
  2. AMBIEN [Concomitant]
     Active Substance: ZOLPIDEM TARTRATE
  3. DEPAKOTE [Concomitant]
     Active Substance: DIVALPROEX SODIUM
  4. PRIMIDONE. [Concomitant]
     Active Substance: PRIMIDONE
  5. LISINOPRIL. [Concomitant]
     Active Substance: LISINOPRIL
  6. ZYPREXA [Concomitant]
     Active Substance: OLANZAPINE
  7. PRAVASTATN (PRAVASTATIN SODIUM) [Concomitant]
  8. HETLIOZ [Suspect]
     Active Substance: TASIMELTEON
     Indication: CIRCADIAN RHYTHM SLEEP DISORDER
     Route: 048
     Dates: start: 201407
  9. DICLOFENAC (DICLOFENAC POTASSIUM) [Concomitant]
  10. METFORMIN [Concomitant]
     Active Substance: METFORMIN HYDROCHLORIDE

REACTIONS (1)
  - Hallucination, visual [None]

NARRATIVE: CASE EVENT DATE: 201407
